FAERS Safety Report 12332020 (Version 1)
Quarter: 2016Q2

REPORT INFORMATION
  Report Type: Spontaneous
  Country: US (occurrence: US)
  Receive Date: 20160504
  Receipt Date: 20160504
  Transmission Date: 20160815
  Serious: No
  Sender: FDA-Public Use
  Company Number: US-PFIZER INC-2016236522

PATIENT
  Age: 86 Year
  Sex: Female

DRUGS (12)
  1. LISINOPRIL. [Concomitant]
     Active Substance: LISINOPRIL
  2. CALCIUM 500+D [Concomitant]
     Active Substance: CALCIUM\VITAMIN D
  3. HYDROCHLOROTHIAZIDE. [Concomitant]
     Active Substance: HYDROCHLOROTHIAZIDE
  4. XALATAN [Concomitant]
     Active Substance: LATANOPROST
  5. XGEVA [Concomitant]
     Active Substance: DENOSUMAB
  6. CHOLESTYRAMINE. [Concomitant]
     Active Substance: CHOLESTYRAMINE
  7. ZESTRIL [Concomitant]
     Active Substance: LISINOPRIL
  8. IBRANCE [Suspect]
     Active Substance: PALBOCICLIB
     Dosage: 125 MG, 1X/DAY(21 DAYS THEN REST 7 DAYS)
     Dates: start: 20150623
  9. VITAMIN D [Concomitant]
     Active Substance: CHOLECALCIFEROL
  10. IBUPROFEN. [Concomitant]
     Active Substance: IBUPROFEN
  11. LATANOPROST. [Concomitant]
     Active Substance: LATANOPROST
  12. NORVASC [Concomitant]
     Active Substance: AMLODIPINE BESYLATE

REACTIONS (1)
  - Fatigue [Unknown]
